FAERS Safety Report 18467253 (Version 1)
Quarter: 2020Q4

REPORT INFORMATION
  Report Type: Spontaneous
  Country: US (occurrence: US)
  Receive Date: 20201104
  Receipt Date: 20201104
  Transmission Date: 20210114
  Serious: Yes (Other)
  Sender: FDA-Public Use
  Company Number: None

PATIENT
  Age: 76 Year
  Sex: Female
  Weight: 126 kg

DRUGS (22)
  1. CHOLECALCIFEROL 5000 UNITS [Concomitant]
     Dates: start: 20201025
  2. DEXAMETHASONE 6 MG [Concomitant]
     Dates: start: 20201026, end: 20201104
  3. METOPROLOL 50 MG [Concomitant]
     Active Substance: METOPROLOL
     Dates: start: 20201025
  4. ALBUTEROL HFA [Concomitant]
     Active Substance: ALBUTEROL SULFATE
     Dates: start: 20201025
  5. LACTULOSE. [Concomitant]
     Active Substance: LACTULOSE
     Dates: start: 20201026
  6. LISINOPRIL 20 MG [Concomitant]
     Active Substance: LISINOPRIL
     Dates: start: 20201025, end: 20201030
  7. BUMETANIDE 2 MG PO [Concomitant]
     Dates: start: 20201025, end: 20201030
  8. ENOXAPARIN 40 MG [Concomitant]
     Active Substance: ENOXAPARIN
     Dates: start: 20201025
  9. FAMOTIDINE 20 MG [Concomitant]
     Active Substance: FAMOTIDINE
     Dates: start: 20201026
  10. INSULIN GLARGINE [Concomitant]
     Active Substance: INSULIN GLARGINE
     Dates: start: 20201025
  11. CLOPIDOGREL [Concomitant]
     Active Substance: CLOPIDOGREL BISULFATE
     Dates: start: 20201025
  12. INSULIN LISPRO [Concomitant]
     Active Substance: INSULIN LISPRO
     Dates: start: 20201025
  13. FUROSEMIDE 20 MG IV [Concomitant]
     Dates: start: 20201026, end: 20201026
  14. SODIUM CHLORIDE 0.9% INFUSION [Concomitant]
     Dates: start: 20201026, end: 20201028
  15. AMPICILLIN/SULBACTAM 3 G [Concomitant]
     Dates: start: 20201025, end: 20201030
  16. AZITHROMYCIN 500 MG [Concomitant]
     Active Substance: AZITHROMYCIN ANHYDROUS
     Dates: start: 20201025, end: 20201029
  17. HYDROCODONE-ACETAMINOPHEN 5-325 MG [Concomitant]
     Active Substance: ACETAMINOPHEN\HYDROCODONE
     Dates: start: 20201026
  18. LEVOTHYROXINE 150 MCG [Concomitant]
     Dates: start: 20201026
  19. ASPIRIN 81 MG [Concomitant]
     Active Substance: ASPIRIN
     Dates: start: 20201025
  20. REMDESIVIR. [Suspect]
     Active Substance: REMDESIVIR
     Indication: COVID-19
     Route: 042
     Dates: start: 20201026, end: 20201028
  21. ASCORBIC ACID TABLET 500 MG [Concomitant]
     Dates: start: 20201026
  22. ATORVASTATIN 40 MG [Concomitant]
     Active Substance: ATORVASTATIN
     Dates: start: 20201025

REACTIONS (1)
  - Renal tubular necrosis [None]

NARRATIVE: CASE EVENT DATE: 20201028
